FAERS Safety Report 4979670-5 (Version None)
Quarter: 2006Q1

REPORT INFORMATION
  Report Type: 
  Country: None (occurrence: None)
  Receive Date: 20060227
  Receipt Date: 20050112
  Transmission Date: 20060701
  Serious: Yes (Disabling)
  Sender: FDA-Public Use
  Company Number: WAES  0501USA01322

PATIENT
  Age: 73 Year
  Sex: Male

DRUGS (11)
  1. ZOCOR [Suspect]
     Indication: BLOOD CHOLESTEROL INCREASED
     Dosage: 20 MG DAILY PO
     Route: 048
     Dates: start: 19950101
  2. KLOR-CON [Concomitant]
  3. NIASPAN [Concomitant]
  4. PAXIL [Concomitant]
  5. PEPCID AC [Concomitant]
  6. PLAVIX [Concomitant]
  7. ASPIRIN [Concomitant]
  8. ATENOLOL [Concomitant]
  9. CHROMIUM PICOLINATE [Concomitant]
  10. FUROSEMIDE [Concomitant]
  11. NAPROXEN [Concomitant]

REACTIONS (1)
  - ASTHENIA [None]
